FAERS Safety Report 9576941 (Version 2)
Quarter: 2013Q4

REPORT INFORMATION
  Report Type: Spontaneous
  Country: US (occurrence: US)
  Receive Date: 20131001
  Receipt Date: 20131009
  Transmission Date: 20140711
  Serious: Yes (Hospitalization)
  Sender: FDA-Public Use
  Company Number: US-BAXTER-2013BAX037688

PATIENT
  Age: 69 Year
  Sex: Male

DRUGS (2)
  1. DIANEAL LOW CALCIUM [Suspect]
     Indication: PERITONEAL DIALYSIS
     Dosage: 5 EXCHANGES
     Route: 033
     Dates: start: 20120813
  2. DIANEAL LOW CALCIUM [Suspect]
     Indication: PERITONEAL DIALYSIS
     Dosage: 5 EXCHANGES
     Route: 033
     Dates: start: 20120813

REACTIONS (2)
  - Peritonitis bacterial [Recovered/Resolved]
  - Device related infection [Unknown]
